FAERS Safety Report 7830155-8 (Version None)
Quarter: 2011Q4

REPORT INFORMATION
  Report Type: 
  Country: None (occurrence: None)
  Receive Date: 20111021
  Receipt Date: 20111012
  Transmission Date: 20120403
  Serious: Yes (Death, Life-Threatening)
  Sender: FDA-Public Use
  Company Number: IT-CELGENEUS-083-50794-11082312

PATIENT
  Sex: Male

DRUGS (4)
  1. VIDAZA [Suspect]
     Dosage: 100 MILLIGRAM
     Route: 058
  2. VIDAZA [Suspect]
     Dosage: 100 MILLIGRAM
     Route: 058
     Dates: start: 20100921
  3. VIDAZA [Suspect]
     Dosage: 100 MILLIGRAM
     Route: 058
     Dates: end: 20110420
  4. VIDAZA [Suspect]
     Dosage: 100 MILLIGRAM
     Route: 058

REACTIONS (2)
  - MYELODYSPLASTIC SYNDROME TRANSFORMATION [None]
  - ACUTE MYELOID LEUKAEMIA [None]
